FAERS Safety Report 9863922 (Version 1)
Quarter: 2014Q1

REPORT INFORMATION
  Report Type: Spontaneous
  Country: BR (occurrence: BR)
  Receive Date: 20140203
  Receipt Date: 20140203
  Transmission Date: 20141002
  Serious: Yes (Hospitalization)
  Sender: FDA-Public Use
  Company Number: BR-PFIZER INC-2014030273

PATIENT
  Age: 65 Year
  Sex: Female

DRUGS (2)
  1. LIPITOR [Suspect]
     Indication: BLOOD CHOLESTEROL
     Dosage: 20 MG, 1X/DAY
     Route: 048
     Dates: start: 201311
  2. ATACAND [Concomitant]
     Indication: BLOOD PRESSURE ABNORMAL
     Dosage: REPORTED AS 8/12.5 MG
     Dates: start: 2009

REACTIONS (1)
  - Cardiac disorder [Unknown]
